FAERS Safety Report 11789173 (Version 1)
Quarter: 2015Q4

REPORT INFORMATION
  Report Type: Spontaneous
  Country: US (occurrence: US)
  Receive Date: 20151201
  Receipt Date: 20151201
  Transmission Date: 20160305
  Serious: Yes (Death, Other)
  Sender: FDA-Public Use
  Company Number: US-FRESENIUS KABI-FK201506075

PATIENT
  Age: 36 Year
  Sex: Female

DRUGS (1)
  1. PROTAMINE SULFATE (MANUFACTURER UNKNOWN) [Suspect]
     Active Substance: PROTAMINE SULFATE
     Indication: PROCOAGULANT THERAPY
     Route: 065

REACTIONS (6)
  - Weaning failure [Fatal]
  - Vasoplegia syndrome [Not Recovered/Not Resolved]
  - Transplant failure [Fatal]
  - Multi-organ failure [Fatal]
  - Pulmonary hypertension [Not Recovered/Not Resolved]
  - Right ventricular failure [Fatal]
